FAERS Safety Report 9814909 (Version 1)
Quarter: 2014Q1

REPORT INFORMATION
  Report Type: Spontaneous
  Country: US (occurrence: US)
  Receive Date: 20140113
  Receipt Date: 20140113
  Transmission Date: 20141002
  Serious: No
  Sender: FDA-Public Use
  Company Number: US-PFIZER INC-2014006590

PATIENT
  Age: 19 Year
  Sex: Female

DRUGS (3)
  1. GEODON [Suspect]
     Dosage: UNK
  2. TRAZODONE [Suspect]
     Dosage: UNK
  3. ABILIFY [Suspect]
     Dosage: UNK

REACTIONS (1)
  - Drug hypersensitivity [Unknown]
